FAERS Safety Report 8058498-6 (Version None)
Quarter: 2012Q1

REPORT INFORMATION
  Report Type: 
  Country: None (occurrence: None)
  Receive Date: 20120120
  Receipt Date: 20120118
  Transmission Date: 20120608
  Serious: Yes (Death, Congenital Anomaly)
  Sender: FDA-Public Use
  Company Number: CH-PFIZER INC-2012013703

PATIENT
  Sex: Male
  Weight: 0.83 kg

DRUGS (2)
  1. ATORVASTATIN CALCIUM [Suspect]
     Indication: HYPERLIPIDAEMIA
     Dosage: 40 MG DAILY
     Route: 064
     Dates: end: 20110901
  2. ELEVIT PRONATAL [Concomitant]
     Dosage: UNK
     Route: 064
     Dates: start: 20110720

REACTIONS (4)
  - MATERNAL EXPOSURE TIMING UNSPECIFIED [None]
  - CEREBRAL HAEMORRHAGE NEONATAL [None]
  - PREMATURE BABY [None]
  - FOETAL GROWTH RESTRICTION [None]
